FAERS Safety Report 11131614 (Version 2)
Quarter: 2015Q2

REPORT INFORMATION
  Report Type: Spontaneous
  Country: US (occurrence: US)
  Receive Date: 20150522
  Receipt Date: 20150618
  Transmission Date: 20150821
  Serious: Yes (Hospitalization)
  Sender: FDA-Public Use
  Company Number: US-AMGEN-USASP2015049085

PATIENT
  Age: 49 Year
  Sex: Female
  Weight: 142.86 kg

DRUGS (2)
  1. ENBREL [Suspect]
     Active Substance: ETANERCEPT
     Indication: RHEUMATOID ARTHRITIS
     Dosage: 50 MG, QWK
     Route: 065
     Dates: start: 20060101, end: 201304
  2. RITUXAN [Suspect]
     Active Substance: RITUXIMAB
     Indication: RHEUMATOID ARTHRITIS
     Dosage: 1000 MG, Q2W THEN EVERY 6 MONTHS
     Route: 042
     Dates: start: 20150429, end: 20150429

REACTIONS (10)
  - Throat irritation [Recovered/Resolved]
  - Arthralgia [Not Recovered/Not Resolved]
  - Breast cancer [Recovered/Resolved]
  - Feeling abnormal [Not Recovered/Not Resolved]
  - Joint swelling [Not Recovered/Not Resolved]
  - Fatigue [Not Recovered/Not Resolved]
  - Chest discomfort [Recovered/Resolved]
  - Ear pruritus [Recovered/Resolved]
  - Oral pruritus [Recovered/Resolved]
  - Postmastectomy lymphoedema syndrome [Unknown]

NARRATIVE: CASE EVENT DATE: 201302
